FAERS Safety Report 14589511 (Version 1)
Quarter: 2018Q1

REPORT INFORMATION
  Report Type: Report from Study
  Country: JP (occurrence: JP)
  Receive Date: 20180302
  Receipt Date: 20180302
  Transmission Date: 20180509
  Serious: Yes (Hospitalization, Other)
  Sender: FDA-Public Use
  Company Number: JP-AMGEN-JPNNI2018028078

PATIENT
  Age: 69 Year
  Sex: Female

DRUGS (2)
  1. ROCALTROL [Suspect]
     Active Substance: CALCITRIOL
     Indication: PRODUCT USED FOR UNKNOWN INDICATION
     Dosage: UNK
     Route: 042
     Dates: start: 20170304
  2. DARBEPOETIN ALFA [Suspect]
     Active Substance: DARBEPOETIN ALFA
     Indication: PRODUCT USED FOR UNKNOWN INDICATION
     Dosage: UNK
     Route: 042
     Dates: start: 20170221

REACTIONS (3)
  - Hospitalisation [Recovering/Resolving]
  - Hospitalisation [Unknown]
  - Anaemia [Recovering/Resolving]

NARRATIVE: CASE EVENT DATE: 20170410
